FAERS Safety Report 7132171-0 (Version None)
Quarter: 2010Q4

REPORT INFORMATION
  Report Type: 
  Country: None (occurrence: None)
  Receive Date: 20101202
  Receipt Date: 20101124
  Transmission Date: 20110411
  Serious: Yes (Hospitalization)
  Sender: FDA-Public Use
  Company Number: AT-NOVOPROD-316910

PATIENT
  Sex: Female
  Weight: 45 kg

DRUGS (2)
  1. NORDITROPIN [Suspect]
     Indication: GROWTH HORMONE DEFICIENCY
     Dosage: 1.4 MG, QD
     Route: 058
     Dates: start: 20050227, end: 20100701
  2. NORDITROPIN [Suspect]
     Dosage: 1.4 MG, QD
     Route: 058
     Dates: start: 20100901, end: 20100901

REACTIONS (1)
  - CONVULSION [None]
